FAERS Safety Report 7681201-6 (Version None)
Quarter: 2011Q3

REPORT INFORMATION
  Report Type: 
  Country: None (occurrence: None)
  Receive Date: 20110812
  Receipt Date: 20110808
  Transmission Date: 20111222
  Serious: Yes (Hospitalization, Other)
  Sender: FDA-Public Use
  Company Number: US-ELI_LILLY_AND_COMPANY-US201008003308

PATIENT
  Sex: Male
  Weight: 108.84 kg

DRUGS (23)
  1. SYNTHROID [Concomitant]
     Dosage: 75 UG, QD
  2. OXYCONTIN [Concomitant]
     Dosage: 20 MG, BID
  3. PLAVIX [Concomitant]
     Dosage: 75 MG, QD
  4. ADVAIR DISKUS 100/50 [Concomitant]
     Dosage: 1 DF, QD
  5. AMBIEN CR [Concomitant]
     Dosage: 12.5 MG, EACH EVENING
  6. ALBUTEROL SULFATE AUTOHALER [Concomitant]
     Dosage: 1 DF, PRN
  7. AMLODIPINE BESYLATE [Concomitant]
     Dosage: 10 MG, QD
  8. FUROSEMIDE [Concomitant]
     Dosage: 80 MG, BID
  9. MICARDIS HCT [Concomitant]
     Dosage: 1 DF, QD
  10. SYNTHROID [Concomitant]
     Dosage: 175 UG, QD
  11. SPIRONOLACTONE [Concomitant]
     Dosage: 50 MG, QD
  12. UROXATRAL [Concomitant]
     Dosage: 10 MG, QD
  13. BYETTA [Suspect]
     Indication: TYPE 2 DIABETES MELLITUS
     Dosage: 5 UG, BID
     Dates: start: 20080724, end: 20100101
  14. VYTORIN [Concomitant]
     Dosage: 1 DF, QD
  15. LORATADINE [Concomitant]
     Dosage: 10 MG, QD
  16. MAGNESIUM OXIDE [Concomitant]
     Dosage: 400 MG, BID
  17. ATENOLOL [Concomitant]
     Dosage: 100 MG, BID
  18. PLETAL [Concomitant]
     Dosage: 50 MG, BID
  19. GLYBURIDE [Concomitant]
     Dosage: 5 MG, QD
  20. ASPIRIN [Concomitant]
     Dosage: 81 MG, QD
  21. JANUVIA [Concomitant]
     Dosage: 100 MG, QD
  22. LANTUS [Concomitant]
     Dosage: 40 U, QD
  23. SINGULAIR [Concomitant]
     Dosage: 10 MG, QD

REACTIONS (5)
  - BLOOD CREATININE INCREASED [None]
  - RENAL FAILURE ACUTE [None]
  - OFF LABEL USE [None]
  - RENAL FAILURE CHRONIC [None]
  - RENAL FAILURE [None]
